FAERS Safety Report 5421407-X (Version None)
Quarter: 2007Q3

REPORT INFORMATION
  Report Type: 
  Country: None (occurrence: None)
  Receive Date: 20070821
  Receipt Date: 20070808
  Transmission Date: 20080115
  Serious: Yes (Other)
  Sender: FDA-Public Use
  Company Number: US-ELI_LILLY_AND_COMPANY-US200708002374

PATIENT
  Age: 48 Year
  Sex: Female

DRUGS (3)
  1. CYMBALTA [Suspect]
     Indication: DEPRESSION
     Dosage: 60 MG, UNK
     Route: 048
  2. XANAX [Concomitant]
  3. LUNESTA [Concomitant]

REACTIONS (2)
  - COMA [None]
  - DRUG INEFFECTIVE [None]
